FAERS Safety Report 6999134-7 (Version None)
Quarter: 2010Q3

REPORT INFORMATION
  Report Type: 
  Country: None (occurrence: None)
  Receive Date: 20100920
  Receipt Date: 20091210
  Transmission Date: 20110219
  Serious: No
  Sender: FDA-Public Use
  Company Number: US-ASTRAZENECA-2009SE22873

PATIENT
  Age: 6905 Day
  Sex: Female
  Weight: 73.5 kg

DRUGS (9)
  1. SEROQUEL [Suspect]
     Indication: SCHIZOAFFECTIVE DISORDER BIPOLAR TYPE
     Route: 048
     Dates: start: 20060101, end: 20091025
  2. SEROQUEL [Suspect]
     Indication: BIPOLAR DISORDER
     Route: 048
     Dates: start: 20060101, end: 20091025
  3. SEROQUEL [Suspect]
     Route: 048
     Dates: start: 20091026, end: 20091107
  4. SEROQUEL [Suspect]
     Route: 048
     Dates: start: 20091026, end: 20091107
  5. SEROQUEL [Suspect]
     Route: 048
     Dates: start: 20091108
  6. SEROQUEL [Suspect]
     Route: 048
     Dates: start: 20091108
  7. LITHIUM CARBONATE [Concomitant]
  8. FISH OIL [Concomitant]
  9. SUPPLEMENTS [Concomitant]

REACTIONS (7)
  - ABDOMINAL PAIN [None]
  - AGGRESSION [None]
  - COGNITIVE DISORDER [None]
  - CONFUSIONAL STATE [None]
  - DEMENTIA [None]
  - DYSKINESIA [None]
  - INSOMNIA [None]
